FAERS Safety Report 6613867-3 (Version None)
Quarter: 2010Q1

REPORT INFORMATION
  Report Type: 
  Country: None (occurrence: None)
  Receive Date: 20100304
  Receipt Date: 20100226
  Transmission Date: 20100710
  Serious: Yes (Other)
  Sender: FDA-Public Use
  Company Number: A0805060A

PATIENT
  Sex: Female
  Weight: 75 kg

DRUGS (2)
  1. TYKERB [Suspect]
     Route: 048
     Dates: start: 20090728, end: 20090824
  2. XELODA [Suspect]
     Dosage: 3500MG PER DAY
     Route: 048
     Dates: start: 20090728, end: 20090810

REACTIONS (3)
  - DEHYDRATION [None]
  - DIARRHOEA [None]
  - PALMAR-PLANTAR ERYTHRODYSAESTHESIA SYNDROME [None]
